FAERS Safety Report 19466569 (Version 5)
Quarter: 2022Q1

REPORT INFORMATION
  Report Type: Spontaneous
  Country: GB (occurrence: GB)
  Receive Date: 20210628
  Receipt Date: 20220105
  Transmission Date: 20220423
  Serious: Yes (Death, Hospitalization, Other)
  Sender: FDA-Public Use
  Company Number: GB-009507513-2012GBR002091

PATIENT
  Age: 53 Year
  Sex: Male
  Weight: 125.1 kg

DRUGS (33)
  1. GEMCITABINE [Suspect]
     Active Substance: GEMCITABINE
     Indication: Leiomyosarcoma
     Dosage: DOSE: 1710 MILLIGRAM, FREQUENCY:D1
     Route: 042
  2. GEMCITABINE [Suspect]
     Active Substance: GEMCITABINE
     Indication: Undifferentiated sarcoma
     Dosage: DOSE: 2128 MG, FREQUENCY: D1 AND D8
     Route: 042
     Dates: start: 20201117, end: 20201210
  3. GEMCITABINE [Suspect]
     Active Substance: GEMCITABINE
     Dosage: 2660 MILLIGRAM, FREQUENCY: D1 AND D8
     Route: 042
     Dates: start: 20201117, end: 20201124
  4. LOSARTAN [Suspect]
     Active Substance: LOSARTAN
     Indication: Hypertension
     Dosage: 50 MILLIGRAM, QD
     Route: 048
  5. BISOPROLOL [Suspect]
     Active Substance: BISOPROLOL
     Indication: Coronary artery disease
     Dosage: 7.5 MILLIGRAM, QD
     Route: 048
  6. FUROSEMIDE [Suspect]
     Active Substance: FUROSEMIDE
     Indication: Coronary artery disease
     Dosage: 20 MILLIGRAM, QD
     Route: 048
  7. METOCLOPRAMIDE [Suspect]
     Active Substance: METOCLOPRAMIDE
     Indication: Nausea
     Dosage: 10 MILLIGRAM, QD, 10 MG, PRN
     Route: 048
  8. OXYCODONE [Suspect]
     Active Substance: OXYCODONE
     Indication: Pelvic pain
     Dosage: 5 MILLIGRAM, QD, 5 MG, PRN
     Route: 048
  9. OXYCODONE [Suspect]
     Active Substance: OXYCODONE
     Dosage: 400 MILLIGRAM, DAILY
     Route: 048
     Dates: start: 20201105
  10. OXYCONTIN [Suspect]
     Active Substance: OXYCODONE HYDROCHLORIDE
     Indication: Pain
     Dosage: 40 MILLIGRAM, TOTAL, 40 MILLIGRAM, ONCE
     Route: 065
  11. OXYCONTIN [Suspect]
     Active Substance: OXYCODONE HYDROCHLORIDE
     Dosage: 30 MILLIGRAM, TOTAL, 30 MILLIGRAM, ONCE
     Route: 048
     Dates: start: 20210224
  12. OXYCONTIN [Suspect]
     Active Substance: OXYCODONE HYDROCHLORIDE
     Dosage: UNK
     Route: 065
     Dates: start: 20210224
  13. OXYCONTIN [Suspect]
     Active Substance: OXYCODONE HYDROCHLORIDE
     Dosage: UNK
     Route: 065
     Dates: start: 20210224
  14. OXYCONTIN [Suspect]
     Active Substance: OXYCODONE HYDROCHLORIDE
     Dosage: 30 MILLIGRAM, TOTAL
     Route: 048
     Dates: start: 20201105
  15. PEMBROLIZUMAB [Suspect]
     Active Substance: PEMBROLIZUMAB
     Indication: Pleomorphic leiomyosarcoma
     Dosage: 200 MILLIGRAM, FREQUENCY: D1
     Route: 042
  16. PEMBROLIZUMAB [Suspect]
     Active Substance: PEMBROLIZUMAB
     Indication: Leiomyosarcoma
     Dosage: 200 MILLIGRAM, FREQUENCY: D1
     Route: 042
     Dates: start: 20210304
  17. PEMBROLIZUMAB [Suspect]
     Active Substance: PEMBROLIZUMAB
     Indication: Undifferentiated sarcoma
     Dosage: 200 MILLIGRAM, WEEKLY
     Route: 042
     Dates: start: 20201117, end: 20210304
  18. PEMBROLIZUMAB [Suspect]
     Active Substance: PEMBROLIZUMAB
     Dosage: 200 MILLIGRAM, WEEKLY
     Route: 042
     Dates: start: 20210708, end: 20210708
  19. ACETAMINOPHEN [Concomitant]
     Active Substance: ACETAMINOPHEN
     Indication: Pelvic pain
     Dosage: 1 GRAM, QD, QD/PRN
     Route: 048
     Dates: start: 2008, end: 2021
  20. ASPIRIN [Concomitant]
     Active Substance: ASPIRIN
     Indication: Prophylaxis
     Dosage: 75 MILLIGRAM, QD
     Route: 048
     Dates: start: 2017, end: 20210308
  21. ATORVASTATIN [Concomitant]
     Active Substance: ATORVASTATIN
     Indication: Coronary artery disease
     Dosage: 80 MILLIGRAM, , TOTAL, ONCE
     Route: 048
     Dates: start: 2017, end: 20210308
  22. CLOTRIMAZOLE [Concomitant]
     Active Substance: CLOTRIMAZOLE
     Indication: Intertrigo
     Dosage: DOSE: T, BID
     Route: 061
     Dates: start: 20201123, end: 20201127
  23. DOCUSATE SODIUM [Concomitant]
     Active Substance: DOCUSATE SODIUM
     Indication: Constipation
     Dosage: 200 MILLIGRAM, BID
     Route: 048
     Dates: start: 2008, end: 2021
  24. GABAPENTIN [Concomitant]
     Active Substance: GABAPENTIN
     Indication: Neuralgia
     Dosage: UNK
     Route: 048
     Dates: start: 20201125, end: 20201127
  25. LANOLIN [Concomitant]
     Active Substance: LANOLIN
     Indication: Rash
     Dosage: DOSE: T TOPICAL, TID
     Route: 061
     Dates: start: 20201123, end: 2021
  26. MINERAL OIL [Concomitant]
     Active Substance: MINERAL OIL
     Indication: Rash
     Dosage: DOSE: T TOPICAL, TID
     Route: 061
     Dates: start: 20201123, end: 2021
  27. PETROLATUM [Concomitant]
     Active Substance: PETROLATUM
     Indication: Rash
     Dosage: DOSE: T TOPICAL, TID
     Route: 061
     Dates: start: 20201123, end: 2021
  28. LANSOPRAZOLE [Concomitant]
     Active Substance: LANSOPRAZOLE
     Indication: Gastrooesophageal reflux disease
     Dosage: 30 MILLIGRAM, QD
     Route: 048
     Dates: start: 2017, end: 20210308
  29. POLYETHYLENE GLYCOL 3350\POTASSIUM CHLORIDE\SODIUM BICARBONATE\SODIUM [Concomitant]
     Active Substance: POLYETHYLENE GLYCOL 3350\POTASSIUM CHLORIDE\SODIUM BICARBONATE\SODIUM CHLORIDE
     Indication: Constipation
     Dosage: 1 DOSAGE FORM, BID, DOSE: 1 SACHET, BID/PRN
     Route: 048
     Dates: start: 2008, end: 2021
  30. LIDOCAINE [Concomitant]
     Active Substance: LIDOCAINE
     Indication: Pain
     Dosage: TOPICAL, TID
     Route: 061
     Dates: start: 20201109, end: 2021
  31. SENOKOT [Concomitant]
     Active Substance: SENNOSIDES
     Indication: Constipation
     Dosage: 7.5 MILLIGRAM (ALSO REPORTED AS 2 TABLETS), QD
     Route: 048
     Dates: start: 20200223, end: 20210308
  32. LANOLIN\LIGHT MINERAL OIL\PARAFFIN [Concomitant]
     Active Substance: LANOLIN\LIGHT MINERAL OIL\PARAFFIN
     Indication: Rash
     Dosage: UNK, TID
     Route: 061
     Dates: start: 20201123, end: 2021
  33. LOSARTAN POTASSIUM [Suspect]
     Active Substance: LOSARTAN POTASSIUM
     Indication: Product used for unknown indication

REACTIONS (13)
  - Cellulitis [Fatal]
  - Fall [Fatal]
  - Skin infection [Fatal]
  - Cardiac failure [Fatal]
  - Urinary retention [Fatal]
  - Accident [Fatal]
  - Dyspnoea [Fatal]
  - Dizziness [Fatal]
  - Death [Fatal]
  - Blood bilirubin increased [Fatal]
  - Pneumonia [Fatal]
  - Urinary tract infection [Recovered/Resolved]
  - Constipation [Recovered/Resolved]

NARRATIVE: CASE EVENT DATE: 20201128
